FAERS Safety Report 11534691 (Version 1)
Quarter: 2015Q3

REPORT INFORMATION
  Report Type: Spontaneous
  Country: US (occurrence: None)
  Receive Date: 20150921
  Receipt Date: 20150921
  Transmission Date: 20151125
  Serious: No
  Sender: FDA-Public Use
  Company Number: None

PATIENT
  Age: 79 Year
  Sex: Female

DRUGS (1)
  1. SPRYCEL [Suspect]
     Active Substance: DASATINIB
     Dosage: 1
     Route: 048
     Dates: start: 201504

REACTIONS (1)
  - Wrong technique in product usage process [None]

NARRATIVE: CASE EVENT DATE: 201509
